FAERS Safety Report 21059655 (Version 1)
Quarter: 2022Q3

REPORT INFORMATION
  Report Type: Spontaneous
  Country: CN (occurrence: CN)
  Receive Date: 20220708
  Receipt Date: 20220708
  Transmission Date: 20221027
  Serious: Yes (Other)
  Sender: FDA-Public Use
  Company Number: CN-BAYER-2022A094766

PATIENT
  Age: 84 Year
  Sex: Male

DRUGS (1)
  1. AVELOX [Suspect]
     Active Substance: MOXIFLOXACIN HYDROCHLORIDE
     Indication: Pulmonary tuberculosis
     Dosage: 0.4 G, QD
     Route: 041
     Dates: start: 20220626, end: 20220629

REACTIONS (7)
  - Amaurosis fugax [Recovering/Resolving]
  - Nausea [Recovering/Resolving]
  - Hyperhidrosis [Recovering/Resolving]
  - Blood pressure decreased [None]
  - Off label use [None]
  - Contraindicated product administered [None]
  - Labelled drug-disease interaction medication error [None]

NARRATIVE: CASE EVENT DATE: 20220626
